FAERS Safety Report 4452458-X (Version None)
Quarter: 2004Q3

REPORT INFORMATION
  Report Type: 
  Country: None (occurrence: None)
  Receive Date: 20040916
  Receipt Date: 20040903
  Transmission Date: 20050211
  Serious: Yes (Hospitalization)
  Sender: FDA-Public Use
  Company Number: BG-2004-031247

PATIENT
  Age: 41 Year
  Sex: Female
  Weight: 63 kg

DRUGS (1)
  1. BETAFERON (INTERFERON BETA 1B) INJECTION 250 UG [Suspect]
     Indication: MULTIPLE SCLEROSIS
     Dosage: 250 UG EVERY 2D SUBCUTANEOUS
     Route: 058
     Dates: start: 20040104

REACTIONS (1)
  - MALIGNANT MELANOMA [None]
